FAERS Safety Report 8777015 (Version 1)
Quarter: 2012Q4

REPORT INFORMATION
  Report Type: 
  Country: IT (occurrence: IT)
  Receive Date: 20120911
  Receipt Date: 20120911
  Transmission Date: 20130627
  Serious: Yes (Other)
  Sender: FDA-Public Use
  Company Number: IT-WATSON-2012-15592

PATIENT
  Age: 39 Year
  Sex: Female

DRUGS (6)
  1. VALPROATE SODIUM [Suspect]
     Indication: BIPOLAR DISORDER
     Dosage: UNK
     Route: 065
  2. DIAZEPAM [Suspect]
     Indication: BIPOLAR DISORDER
     Dosage: UNK mg, unknown
     Route: 065
  3. LITHIUM CARBONATE [Suspect]
     Indication: BIPOLAR DISORDER
     Dosage: 600 mg, daily
     Route: 065
  4. HALOPERIDOL [Suspect]
     Indication: BIPOLAR DISORDER
     Dosage: UNK mg, unknown
     Route: 065
  5. PIPAMPERONE [Suspect]
     Indication: BIPOLAR DISORDER
     Dosage: UNK
     Route: 065
  6. CLOZAPINE [Suspect]
     Indication: BIPOLAR DISORDER
     Dosage: 200 mg, daily
     Route: 065

REACTIONS (2)
  - Neuroleptic malignant syndrome [Recovered/Resolved]
  - Catatonia [Recovered/Resolved]
